FAERS Safety Report 7064617-0 (Version None)
Quarter: 2010Q4

REPORT INFORMATION
  Report Type: 
  Country: None (occurrence: None)
  Receive Date: 20101022
  Receipt Date: 20101022
  Transmission Date: 20110411
  Serious: No
  Sender: FDA-Public Use
  Company Number: None

PATIENT
  Sex: Female
  Weight: 61.6892 kg

DRUGS (2)
  1. PROZAC [Suspect]
     Indication: BODY DYSMORPHIC DISORDER
     Dosage: 80 MG IN THE MORNING ORAL
     Route: 048
     Dates: start: 20100525, end: 20100927
  2. PROZAC [Suspect]
     Indication: OBSESSIVE-COMPULSIVE DISORDER
     Dosage: 80 MG IN THE MORNING ORAL
     Route: 048
     Dates: start: 20100525, end: 20100927

REACTIONS (1)
  - ALOPECIA [None]
